FAERS Safety Report 4614344-1 (Version None)
Quarter: 2005Q1

REPORT INFORMATION
  Report Type: 
  Country: None (occurrence: None)
  Receive Date: 20050315
  Receipt Date: 20050302
  Transmission Date: 20050727
  Serious: Yes (Hospitalization)
  Sender: FDA-Public Use
  Company Number: A01200501262

PATIENT
  Age: 79 Year
  Sex: Male

DRUGS (5)
  1. PLAVIX [Suspect]
     Indication: CORONARY ARTERY DISEASE
     Dosage: 75 MG OD ORAL: TIME TO ONSET : 5 YEARS
     Route: 048
  2. RAMIPRIL [Concomitant]
  3. SELOZOK (METOPROLOL SUCCINATE) [Concomitant]
  4. VASTAREL (TRIMETAZIDINE) [Concomitant]
  5. ZOCOR [Concomitant]

REACTIONS (1)
  - ATRIAL FIBRILLATION [None]
